FAERS Safety Report 7338951-0 (Version None)
Quarter: 2011Q1

REPORT INFORMATION
  Report Type: 
  Country: None (occurrence: None)
  Receive Date: 20110308
  Receipt Date: 20110301
  Transmission Date: 20110831
  Serious: Yes (Other)
  Sender: FDA-Public Use
  Company Number: NL-TEVA-269729ISR

PATIENT
  Sex: Male
  Weight: 83 kg

DRUGS (2)
  1. GEMCITABINE [Concomitant]
     Dates: start: 20110118, end: 20110118
  2. CISPLATIN [Suspect]
     Indication: LUNG NEOPLASM MALIGNANT
     Dates: start: 20110118

REACTIONS (1)
  - ARTERIAL OCCLUSIVE DISEASE [None]
